FAERS Safety Report 10200561 (Version 2)
Quarter: 2014Q2

REPORT INFORMATION
  Report Type: Report from Study
  Country: AU (occurrence: AU)
  Receive Date: 20140528
  Receipt Date: 20140528
  Transmission Date: 20141212
  Serious: Yes (Hospitalization)
  Sender: FDA-Public Use
  Company Number: AU-BIOGENIDEC-2014BI025151

PATIENT
  Age: 54 Year
  Sex: Female

DRUGS (4)
  1. TECFIDERA [Suspect]
     Indication: MULTIPLE SCLEROSIS
     Route: 048
     Dates: start: 20140310
  2. TECFIDERA [Suspect]
     Indication: MULTIPLE SCLEROSIS
     Route: 048
     Dates: start: 20140310
  3. CORTISONE [Concomitant]
     Route: 042
  4. MERCAPTOPURINE [Concomitant]
     Indication: CROHN^S DISEASE

REACTIONS (7)
  - Multiple sclerosis [Not Recovered/Not Resolved]
  - Joint swelling [Recovered/Resolved]
  - Muscle spasms [Unknown]
  - Abdominal distension [Unknown]
  - Multiple sclerosis relapse [Not Recovered/Not Resolved]
  - Flushing [Recovered/Resolved]
  - Abdominal pain upper [Not Recovered/Not Resolved]
